FAERS Safety Report 8902529 (Version 2)
Quarter: 2012Q4

REPORT INFORMATION
  Report Type: Report from Study
  Country: AU (occurrence: AU)
  Receive Date: 20121112
  Receipt Date: 20121211
  Transmission Date: 20130627
  Serious: Yes (Other)
  Sender: FDA-Public Use
  Company Number: AU-GLAXOSMITHKLINE-B0843340A

PATIENT
  Age: 21 Year
  Sex: Male
  Weight: 80.2 kg

DRUGS (1)
  1. NICOTINE [Suspect]
     Indication: SMOKING CESSATION THERAPY
     Route: 062
     Dates: start: 20120905, end: 20121029

REACTIONS (1)
  - Atrial fibrillation [Recovered/Resolved]
